FAERS Safety Report 19894037 (Version 2)
Quarter: 2022Q4

REPORT INFORMATION
  Report Type: Spontaneous
  Country: US (occurrence: US)
  Receive Date: 20210929
  Receipt Date: 20221019
  Transmission Date: 20230113
  Serious: No
  Sender: FDA-Public Use
  Company Number: US-CELLTRION INC.-2021US009376

PATIENT

DRUGS (15)
  1. INFLECTRA [Suspect]
     Active Substance: INFLIXIMAB-DYYB
     Indication: Colitis ulcerative
     Dosage: UNK MG
     Dates: start: 202101
  2. INFLECTRA [Suspect]
     Active Substance: INFLIXIMAB-DYYB
     Dosage: 500 MG
     Route: 042
  3. PROAIR HFA [Concomitant]
     Active Substance: ALBUTEROL SULFATE
  4. LIPITOR [Concomitant]
     Active Substance: ATORVASTATIN CALCIUM
  5. FOLVITE [FOLIC ACID] [Concomitant]
  6. PREVACID [Concomitant]
     Active Substance: LANSOPRAZOLE
  7. COZAAR [Concomitant]
     Active Substance: LOSARTAN POTASSIUM
  8. SINGULAIR [Concomitant]
     Active Substance: MONTELUKAST SODIUM
  9. FLOMOX [AMOXICILLIN SODIUM] [Concomitant]
  10. LASIX [Concomitant]
     Active Substance: FUROSEMIDE
  11. FLONASE [Concomitant]
     Active Substance: FLUTICASONE PROPIONATE
  12. CALCIUM [Concomitant]
     Active Substance: CALCIUM
  13. POTASSIUM [Concomitant]
     Active Substance: POTASSIUM
  14. VITAMIN D NOS [Concomitant]
     Active Substance: VITAMIN D NOS
  15. VITAMIN B COMPLEX [Concomitant]
     Active Substance: CYANOCOBALAMIN\DEXPANTHENOL\NIACINAMIDE\PYRIDOXINE HYDROCHLORIDE\RIBOFLAVIN 5^-PHOSPHATE SODIUM\THIA

REACTIONS (2)
  - Product dose omission issue [Not Recovered/Not Resolved]
  - Overdose [Unknown]

NARRATIVE: CASE EVENT DATE: 20210701
